FAERS Safety Report 15831821 (Version 2)
Quarter: 2019Q1

REPORT INFORMATION
  Report Type: Spontaneous
  Country: DE (occurrence: DE)
  Receive Date: 20190116
  Receipt Date: 20190208
  Transmission Date: 20190417
  Serious: Yes (Other)
  Sender: FDA-Public Use
  Company Number: DE-TEVA-2019-DE-994705

PATIENT
  Age: 69 Year
  Sex: Female
  Weight: 115 kg

DRUGS (4)
  1. MARCUMAR [Concomitant]
     Active Substance: PHENPROCOUMON
  2. RAMIPRIL. [Concomitant]
     Active Substance: RAMIPRIL
  3. JODTHYROX [Concomitant]
     Active Substance: LEVOTHYROXINE SODIUM\POTASSIUM IODIDE
  4. IBANDRONSAEURE-RATIOPHARM 3 MG INJEKTIONSLOESUNG [Suspect]
     Active Substance: IBANDRONATE SODIUM
     Indication: OSTEOPOROSIS
     Dosage: USAGE FOR OVER 1 YEAR: 3 MG EVERY 3 MONTHS
     Route: 042
     Dates: start: 20170727, end: 20180524

REACTIONS (4)
  - Tooth extraction [Unknown]
  - Osteitis [Not Recovered/Not Resolved]
  - Osteonecrosis [Not Recovered/Not Resolved]
  - Fractured sacrum [Unknown]

NARRATIVE: CASE EVENT DATE: 201811
